FAERS Safety Report 9069031 (Version 2)
Quarter: 2013Q2

REPORT INFORMATION
  Report Type: Spontaneous
  Country: US (occurrence: US)
  Receive Date: 20130215
  Receipt Date: 20130430
  Transmission Date: 20140414
  Serious: Yes (Hospitalization, Other)
  Sender: FDA-Public Use
  Company Number: US-TEVA-386059USA

PATIENT
  Age: 77 Year
  Sex: Female

DRUGS (2)
  1. PRAVASTATIN [Suspect]
     Indication: HYPERLIPIDAEMIA
     Dosage: 20 MILLIGRAM DAILY;
     Dates: end: 201302
  2. VITAMINS [Concomitant]

REACTIONS (3)
  - Dementia Alzheimer^s type [Unknown]
  - Malaise [Unknown]
  - Memory impairment [Not Recovered/Not Resolved]
